FAERS Safety Report 7393168-9 (Version None)
Quarter: 2011Q2

REPORT INFORMATION
  Report Type: 
  Country: None (occurrence: None)
  Receive Date: 20110404
  Receipt Date: 20110321
  Transmission Date: 20111010
  Serious: Yes (Hospitalization)
  Sender: FDA-Public Use
  Company Number: IT-MYLANLABS-2011S1006074

PATIENT
  Sex: Female

DRUGS (3)
  1. METHYLPREDNISOLONE [Concomitant]
     Indication: IMMUNOSUPPRESSION
     Route: 065
     Dates: start: 20041001, end: 20050101
  2. SIROLIMUS [Suspect]
     Indication: IMMUNOSUPPRESSION
     Route: 065
     Dates: start: 20060101
  3. TACROLIMUS [Suspect]
     Indication: IMMUNOSUPPRESSION
     Route: 065
     Dates: start: 20041001, end: 20060101

REACTIONS (1)
  - MOYAMOYA DISEASE [None]
